FAERS Safety Report 18748412 (Version 1)
Quarter: 2021Q1

REPORT INFORMATION
  Report Type: Spontaneous
  Country: US (occurrence: US)
  Receive Date: 20210116
  Receipt Date: 20210116
  Transmission Date: 20210419
  Serious: Yes (Other)
  Sender: FDA-Public Use
  Company Number: US-MACLEODS PHARMACEUTICALS US LTD-MAC2021029777

PATIENT

DRUGS (5)
  1. LOVASTATIN. [Interacting]
     Active Substance: LOVASTATIN
     Dosage: 20 MILLIGRAM, QD
     Route: 065
  2. QUETIAPINE. [Suspect]
     Active Substance: QUETIAPINE
     Indication: SCHIZOPHRENIA
     Dosage: 800 MILLIGRAM, QD
     Route: 065
  3. LOVASTATIN. [Interacting]
     Active Substance: LOVASTATIN
     Dosage: 5 MILLIGRAM, QD
     Route: 065
  4. LOVASTATIN. [Interacting]
     Active Substance: LOVASTATIN
     Indication: DYSLIPIDAEMIA
     Dosage: 10 MILLIGRAM, QD
     Route: 065
  5. SERTRALINE [Concomitant]
     Active Substance: SERTRALINE HYDROCHLORIDE
     Indication: SCHIZOPHRENIA
     Dosage: 100 MILLIGRAM, QD
     Route: 065

REACTIONS (3)
  - Electrocardiogram QT prolonged [Recovered/Resolved]
  - Drug interaction [Recovered/Resolved]
  - Product dose omission issue [Unknown]
